FAERS Safety Report 7278178-4 (Version None)
Quarter: 2011Q1

REPORT INFORMATION
  Report Type: 
  Country: None (occurrence: None)
  Receive Date: 20110207
  Receipt Date: 20110126
  Transmission Date: 20110831
  Serious: Yes (Other)
  Sender: FDA-Public Use
  Company Number: B0667742A

PATIENT
  Sex: Female

DRUGS (3)
  1. LENDORMIN [Concomitant]
     Indication: INSOMNIA
     Dosage: .25MG PER DAY
     Route: 048
     Dates: start: 20060719, end: 20060831
  2. SOLANAX [Concomitant]
  3. PAROXETINE HCL [Suspect]
     Indication: DEPRESSION
     Route: 048
     Dates: start: 20060608, end: 20060628

REACTIONS (4)
  - HYPOMANIA [None]
  - ACTIVATION SYNDROME [None]
  - ANXIETY [None]
  - FEELING JITTERY [None]
